FAERS Safety Report 9462187 (Version 1)
Quarter: 2013Q3

REPORT INFORMATION
  Report Type: Spontaneous
  Country: US (occurrence: US)
  Receive Date: 20130816
  Receipt Date: 20130816
  Transmission Date: 20140515
  Serious: Yes (Hospitalization, Other)
  Sender: FDA-Public Use
  Company Number: US-B.I. PHARMACEUTICALS,INC./RIDGEFIELD-2013-BI-24080BP

PATIENT
  Age: 61 Year
  Sex: Female

DRUGS (3)
  1. CATAPRES TTS [Suspect]
     Indication: HYPERTENSION
     Dosage: 7.5 MG (0.3 MG/DAY) Q/WEEK
     Route: 055
     Dates: start: 199811
  2. LISINOPRIL [Concomitant]
     Indication: HYPERTENSION
     Dosage: 10 MG
     Route: 048
     Dates: start: 201306
  3. EDARBI [Concomitant]
     Indication: HYPERTENSION
     Dosage: 80 MG
     Route: 048
     Dates: start: 2011

REACTIONS (7)
  - Convulsion [Recovered/Resolved]
  - Hypersensitivity [Recovered/Resolved]
  - Anxiety [Not Recovered/Not Resolved]
  - Insomnia [Not Recovered/Not Resolved]
  - Decreased appetite [Not Recovered/Not Resolved]
  - Mood altered [Not Recovered/Not Resolved]
  - Hypertension [Not Recovered/Not Resolved]
